FAERS Safety Report 5146153-1 (Version None)
Quarter: 2006Q4

REPORT INFORMATION
  Report Type: 
  Country: None (occurrence: None)
  Receive Date: 20061108
  Receipt Date: 20060307
  Transmission Date: 20070319
  Serious: Yes (Death)
  Sender: FDA-Public Use
  Company Number: US-SANOFI-SYNTHELABO-A03200601245

PATIENT
  Sex: Female
  Weight: 47.62 kg

DRUGS (12)
  1. FLEXERIL [Concomitant]
  2. REGLAN [Concomitant]
  3. DARVOCET [Concomitant]
  4. KLONOPIN [Concomitant]
  5. ISORDIL [Concomitant]
  6. PREMARIN [Concomitant]
  7. CLARINEX [Concomitant]
  8. PROTONIX [Concomitant]
  9. FOSAMAX [Concomitant]
  10. DIOVAN [Concomitant]
  11. PRAVACHOL [Suspect]
     Indication: BLOOD CHOLESTEROL INCREASED
     Route: 048
     Dates: start: 20010101
  12. PLAVIX [Suspect]
     Indication: TRANSIENT ISCHAEMIC ATTACK
     Route: 048
     Dates: start: 20060101

REACTIONS (1)
  - CHRONIC OBSTRUCTIVE PULMONARY DISEASE [None]
